FAERS Safety Report 20818222 (Version 1)
Quarter: 2022Q2

REPORT INFORMATION
  Report Type: Spontaneous
  Country: US (occurrence: None)
  Receive Date: 20220511
  Receipt Date: 20220511
  Transmission Date: 20220721
  Serious: Yes (Death)
  Sender: FDA-Public Use
  Company Number: None

PATIENT
  Age: 67 Year
  Sex: Male
  Weight: 76.66 kg

DRUGS (15)
  1. AFINITOR [Suspect]
     Active Substance: EVEROLIMUS
     Indication: Renal cancer
     Dosage: FREQUENCY : DAILY;?
     Route: 048
     Dates: end: 20220504
  2. BENZONATATE [Concomitant]
  3. FAMOTIDINE [Concomitant]
  4. FLECAINIDE [Concomitant]
  5. LEVOTHYROXINE [Concomitant]
  6. LOPERAMIDE [Concomitant]
  7. MECLIZINE [Concomitant]
  8. METOPROLOL [Concomitant]
     Active Substance: METOPROLOL
  9. NORCO [Concomitant]
  10. ROBITUSSIN [Concomitant]
  11. SENNA [Concomitant]
     Active Substance: SENNA LEAF\SENNOSIDES\SENNOSIDES A AND B
  12. SERTRALINE [Concomitant]
  13. TAMSULOSIN [Concomitant]
  14. VENTOLIN [Concomitant]
     Active Substance: ALBUTEROL SULFATE
  15. ZOFRAN [Concomitant]

REACTIONS (1)
  - Death [None]

NARRATIVE: CASE EVENT DATE: 20220504
